FAERS Safety Report 12757929 (Version 1)
Quarter: 2016Q3

REPORT INFORMATION
  Report Type: Spontaneous
  Country: US (occurrence: US)
  Receive Date: 20160916
  Receipt Date: 20160916
  Transmission Date: 20161109
  Serious: Yes (Hospitalization)
  Sender: FDA-Public Use
  Company Number: None

PATIENT
  Age: 51 Year
  Sex: Female
  Weight: 45.63 kg

DRUGS (2)
  1. GEMCITABINE HYDROCHLORIDE. [Suspect]
     Active Substance: GEMCITABINE HYDROCHLORIDE
     Dates: end: 20150204
  2. CISPLATIN. [Suspect]
     Active Substance: CISPLATIN
     Dates: end: 20150204

REACTIONS (11)
  - Dysuria [None]
  - Pancreatitis acute [None]
  - Colitis ulcerative [None]
  - Colitis [None]
  - Weight decreased [None]
  - Enterocolitis [None]
  - Crohn^s disease [None]
  - Anal incontinence [None]
  - Clostridium difficile colitis [None]
  - Urinary incontinence [None]
  - Hypertension [None]

NARRATIVE: CASE EVENT DATE: 20160102
